FAERS Safety Report 22216860 (Version 1)
Quarter: 2023Q2

REPORT INFORMATION
  Report Type: Spontaneous
  Country: US (occurrence: US)
  Receive Date: 20230417
  Receipt Date: 20230417
  Transmission Date: 20230721
  Serious: No
  Sender: FDA-Public Use
  Company Number: US-JNJFOC-20230423440

PATIENT
  Sex: Female
  Weight: 113.50 kg

DRUGS (7)
  1. XARELTO [Suspect]
     Active Substance: RIVAROXABAN
     Indication: Pulmonary embolism
     Route: 048
     Dates: start: 201411
  2. ZOLPIDEM TARTRATE [Concomitant]
     Active Substance: ZOLPIDEM TARTRATE
  3. BENZONATATE [Concomitant]
     Active Substance: BENZONATATE
  4. LISINOPRIL [Concomitant]
     Active Substance: LISINOPRIL
  5. OXYCODONE AND ACETAMINOPHEN [Concomitant]
     Active Substance: ACETAMINOPHEN\OXYCODONE HYDROCHLORIDE
  6. METHADONE [Concomitant]
     Active Substance: METHADONE HYDROCHLORIDE
  7. VALTREX [Concomitant]
     Active Substance: VALACYCLOVIR HYDROCHLORIDE
     Indication: Herpes zoster

REACTIONS (6)
  - Nasal congestion [Unknown]
  - Vaginal haemorrhage [Unknown]
  - Herpes zoster [Unknown]
  - Hypophagia [Unknown]
  - Food allergy [Unknown]
  - Drug hypersensitivity [Unknown]
